FAERS Safety Report 15150247 (Version 1)
Quarter: 2018Q3

REPORT INFORMATION
  Report Type: Spontaneous
  Country: DE (occurrence: DE)
  Receive Date: 20180716
  Receipt Date: 20180716
  Transmission Date: 20181010
  Serious: Yes (Other)
  Sender: FDA-Public Use
  Company Number: DE-US WORLDMEDS, LLC-STA_00016451

PATIENT
  Age: 76 Year
  Sex: Male
  Weight: 70 kg

DRUGS (11)
  1. QUETIAPIN 25 [Concomitant]
     Active Substance: QUETIAPINE
     Indication: PRODUCT USED FOR UNKNOWN INDICATION
  2. TREVILOR 37,5 [Concomitant]
     Indication: PRODUCT USED FOR UNKNOWN INDICATION
  3. STALEVO 150 [Concomitant]
     Indication: PRODUCT USED FOR UNKNOWN INDICATION
  4. ASTONIN 0,1 [Concomitant]
     Indication: PRODUCT USED FOR UNKNOWN INDICATION
  5. METOHEXAL 23,75 [Concomitant]
     Indication: PRODUCT USED FOR UNKNOWN INDICATION
  6. MOVICOL BTL [Concomitant]
     Indication: PRODUCT USED FOR UNKNOWN INDICATION
  7. STALEVO 50 [Concomitant]
     Indication: PRODUCT USED FOR UNKNOWN INDICATION
  8. VALORON RET 50 [Concomitant]
     Indication: PRODUCT USED FOR UNKNOWN INDICATION
  9. APOMORPHINE HYDROCHLORIDE [Suspect]
     Active Substance: APOMORPHINE HYDROCHLORIDE
     Indication: PARKINSON^S DISEASE
     Route: 058
     Dates: start: 201307
  10. ACETYLSALICYLIC ACID [Concomitant]
     Active Substance: ASPIRIN
     Indication: PRODUCT USED FOR UNKNOWN INDICATION
  11. NACOM 200 RET [Concomitant]
     Indication: PRODUCT USED FOR UNKNOWN INDICATION

REACTIONS (3)
  - Injection site induration [Not Recovered/Not Resolved]
  - Injection site necrosis [Not Recovered/Not Resolved]
  - Injection site inflammation [Recovered/Resolved]

NARRATIVE: CASE EVENT DATE: 20140130
